FAERS Safety Report 5737335-6 (Version None)
Quarter: 2008Q2

REPORT INFORMATION
  Report Type: 
  Country: None (occurrence: None)
  Receive Date: 20080514
  Receipt Date: 20080505
  Transmission Date: 20081010
  Serious: Yes (Hospitalization)
  Sender: FDA-Public Use
  Company Number: DK-TYCO HEALTHCARE/MALLINCKRODT-T200800784

PATIENT

DRUGS (1)
  1. OPTIRAY 300 [Suspect]
     Indication: VENOGRAM
     Dosage: 75 ML, SINGLE
     Route: 042
     Dates: start: 20080417, end: 20080417

REACTIONS (1)
  - ANAPHYLACTIC SHOCK [None]
